FAERS Safety Report 6738602-X (Version None)
Quarter: 2010Q2

REPORT INFORMATION
  Report Type: 
  Country: None (occurrence: None)
  Receive Date: 20100524
  Receipt Date: 20100512
  Transmission Date: 20101027
  Serious: Yes (Other)
  Sender: FDA-Public Use
  Company Number: FR-PFIZER INC-2010059561

PATIENT
  Sex: Male

DRUGS (1)
  1. ZYVOXID [Suspect]
     Indication: TUBERCULOSIS
     Dosage: UNK
     Route: 048

REACTIONS (2)
  - CHOLESTASIS [None]
  - OCULAR ICTERUS [None]
